FAERS Safety Report 8391077-X (Version None)
Quarter: 2012Q2

REPORT INFORMATION
  Report Type: 
  Country: None (occurrence: None)
  Receive Date: 20120529
  Receipt Date: 20120518
  Transmission Date: 20120825
  Serious: Yes (Other)
  Sender: FDA-Public Use
  Company Number: JP-VERTEX PHARMACEUTICALS INC.-AE-2012-007655

PATIENT
  Sex: Male

DRUGS (6)
  1. RIBAVIRIN [Concomitant]
     Indication: HEPATITIS C
     Route: 048
     Dates: start: 20120213, end: 20120304
  2. RIBAVIRIN [Concomitant]
     Route: 048
     Dates: start: 20120305, end: 20120311
  3. TELAVIC (TELAPREVIR) [Suspect]
     Indication: HEPATITIS C
     Route: 048
     Dates: start: 20120213
  4. RIBAVIRIN [Concomitant]
     Route: 048
     Dates: start: 20120312, end: 20120331
  5. PEGINTERFERON ALFA-2B [Concomitant]
     Indication: HEPATITIS C
     Route: 051
     Dates: start: 20120213, end: 20120331
  6. TELAVIC (TELAPREVIR) [Suspect]
     Route: 048
     Dates: start: 20120226, end: 20120331

REACTIONS (1)
  - RASH [None]
